FAERS Safety Report 4748357-6 (Version None)
Quarter: 2005Q3

REPORT INFORMATION
  Report Type: 
  Country: None (occurrence: None)
  Receive Date: 20050815
  Receipt Date: 20050705
  Transmission Date: 20060218
  Serious: No
  Sender: FDA-Public Use
  Company Number: USA050394594

PATIENT
  Sex: Male

DRUGS (1)
  1. CIALIS [Suspect]
     Route: 065

REACTIONS (2)
  - SPONTANEOUS PENILE ERECTION [None]
  - UNEVALUABLE EVENT [None]
